FAERS Safety Report 25763889 (Version 1)
Quarter: 2025Q3

REPORT INFORMATION
  Report Type: Spontaneous
  Country: US (occurrence: US)
  Receive Date: 20250905
  Receipt Date: 20250905
  Transmission Date: 20251021
  Serious: No
  Sender: DOMPE FARMACEUTICI
  Company Number: US-FARMAPROD-202411-3877

PATIENT
  Sex: Female

DRUGS (6)
  1. OXERVATE [Suspect]
     Active Substance: CENEGERMIN-BKBJ
     Indication: Neurotrophic keratopathy
     Route: 047
     Dates: start: 20241014
  2. VEVYE [Concomitant]
     Active Substance: CYCLOSPORINE
  3. PROBIOTICS NOS [Concomitant]
     Active Substance: PROBIOTICS NOS
  4. MAGNESIUM [Concomitant]
     Active Substance: MAGNESIUM
  5. ESTRADIOL [Concomitant]
     Active Substance: ESTRADIOL
  6. VITAMIN D-400 [Concomitant]

REACTIONS (2)
  - Periorbital discomfort [Unknown]
  - Wrong technique in product usage process [Unknown]
